FAERS Safety Report 4283098-3 (Version None)
Quarter: 2004Q1

REPORT INFORMATION
  Report Type: 
  Country: None (occurrence: None)
  Receive Date: 20040129
  Receipt Date: 20040122
  Transmission Date: 20041129
  Serious: Yes (Hospitalization, Other)
  Sender: FDA-Public Use
  Company Number: 2003188569US

PATIENT
  Sex: Female

DRUGS (3)
  1. DOSTINEX [Suspect]
     Indication: PROLACTINOMA
     Dosage: 1 TABLET/WEEK,
     Dates: start: 19980101, end: 19980101
  2. DOSTINEX [Suspect]
     Indication: PROLACTINOMA
     Dosage: 1 TABLET/WEEK,
     Dates: start: 19990101, end: 19990101
  3. DOSTINEX [Suspect]
     Indication: PROLACTINOMA
     Dosage: 1 TABLET/WEEK,
     Dates: end: 20000101

REACTIONS (6)
  - BENIGN UTERINE NEOPLASM [None]
  - METRORRHAGIA [None]
  - PELVIC PAIN [None]
  - PELVIC PERITONEAL ADHESIONS [None]
  - SMEAR CERVIX ABNORMAL [None]
  - UTERINE ENLARGEMENT [None]
